FAERS Safety Report 17252199 (Version 10)
Quarter: 2021Q2

REPORT INFORMATION
  Report Type: Spontaneous
  Country: US (occurrence: US)
  Receive Date: 20200109
  Receipt Date: 20210524
  Transmission Date: 20210716
  Serious: Yes (Other)
  Sender: FDA-Public Use
  Company Number: US-PFIZER INC-2020007502

PATIENT
  Age: 75 Year
  Sex: Female

DRUGS (3)
  1. LYRICA [Suspect]
     Active Substance: PREGABALIN
     Indication: ARTHRITIS
     Dosage: UNK
  2. LYRICA [Suspect]
     Active Substance: PREGABALIN
     Indication: HIP ARTHROPLASTY
  3. LYRICA [Suspect]
     Active Substance: PREGABALIN
     Indication: KNEE ARTHROPLASTY

REACTIONS (10)
  - Gait inability [Unknown]
  - Nasopharyngitis [Unknown]
  - Neuropathy peripheral [Not Recovered/Not Resolved]
  - Off label use [Unknown]
  - Paraesthesia [Unknown]
  - Chills [Unknown]
  - Abnormal behaviour [Unknown]
  - Hypoaesthesia [Not Recovered/Not Resolved]
  - Drug effective for unapproved indication [Unknown]
  - Thinking abnormal [Unknown]
